FAERS Safety Report 11293164 (Version 1)
Quarter: 2015Q3

REPORT INFORMATION
  Report Type: Spontaneous
  Country: US (occurrence: US)
  Receive Date: 20150722
  Receipt Date: 20150722
  Transmission Date: 20151125
  Serious: No
  Sender: FDA-Public Use
  Company Number: US-009507513-1507USA010223

PATIENT
  Age: 24 Year
  Sex: Female

DRUGS (12)
  1. CYTARABINE. [Concomitant]
     Active Substance: CYTARABINE
     Indication: CHEMOTHERAPY
  2. HEXADROL [Suspect]
     Active Substance: DEXAMETHASONE
     Indication: NEUROLOGICAL SYMPTOM
     Route: 048
  3. NOXAFIL [Concomitant]
     Active Substance: POSACONAZOLE
     Indication: ANTIFUNGAL TREATMENT
     Dosage: 200 MG, Q6H
     Route: 048
  4. VALACYCLOVIR HYDROCHLORIDE. [Concomitant]
     Active Substance: VALACYCLOVIR HYDROCHLORIDE
     Indication: PROPHYLAXIS
  5. NOXAFIL [Concomitant]
     Active Substance: POSACONAZOLE
     Dosage: 400 MG, BID
  6. AMPHOTERICIN B. [Concomitant]
     Active Substance: AMPHOTERICIN B
     Indication: ANTIFUNGAL TREATMENT
     Dosage: 5 MG/KG, QD
  7. LEVOFLOXACIN. [Concomitant]
     Active Substance: LEVOFLOXACIN
     Indication: PROPHYLAXIS
  8. SULFAMETHOXAZOLE (+) TRIMETHOPRIM [Concomitant]
     Active Substance: SULFAMETHOXAZOLE\TRIMETHOPRIM
     Indication: PROPHYLAXIS
  9. ITRACONAZOLE. [Concomitant]
     Active Substance: ITRACONAZOLE
     Indication: PROPHYLAXIS
  10. CANCIDAS [Concomitant]
     Active Substance: CASPOFUNGIN ACETATE
     Indication: ANTIFUNGAL TREATMENT
     Dosage: 100 MG, QD
  11. AMPHOTERICIN B. [Concomitant]
     Active Substance: AMPHOTERICIN B
     Dosage: 7.5 UNK, UNK
  12. VORICONAZOLE. [Concomitant]
     Active Substance: VORICONAZOLE
     Indication: ANTIFUNGAL TREATMENT
     Dosage: 4 MG/KG, Q12H

REACTIONS (1)
  - Hyperglycaemia [Unknown]
